FAERS Safety Report 6729281-6 (Version None)
Quarter: 2010Q2

REPORT INFORMATION
  Report Type: 
  Country: None (occurrence: None)
  Receive Date: 20100517
  Receipt Date: 20100430
  Transmission Date: 20101027
  Serious: No
  Sender: FDA-Public Use
  Company Number: US-ABBOTT-10P-163-0641788-00

PATIENT
  Sex: Female
  Weight: 79.904 kg

DRUGS (3)
  1. SIMCOR [Suspect]
     Indication: BLOOD CHOLESTEROL INCREASED
     Dates: start: 20100422
  2. ASPIRIN [Concomitant]
     Indication: DRUG USE FOR UNKNOWN INDICATION
  3. VALIUM [Concomitant]
     Indication: INSOMNIA
     Dosage: 5-10MG AS NEEDED

REACTIONS (5)
  - BLOOD GLUCOSE INCREASED [None]
  - ENERGY INCREASED [None]
  - FLATULENCE [None]
  - HYPERVIGILANCE [None]
  - INSOMNIA [None]
